FAERS Safety Report 8433229-6 (Version None)
Quarter: 2012Q2

REPORT INFORMATION
  Report Type: 
  Country: None (occurrence: None)
  Receive Date: 20120323
  Receipt Date: 20111215
  Transmission Date: 20120825
  Serious: Yes (Other)
  Sender: FDA-Public Use
  Company Number: 163-21880-11083332

PATIENT
  Age: 60 Year
  Sex: Male
  Weight: 111.1313 kg

DRUGS (7)
  1. SPIRIVA [Concomitant]
  2. LYRICA [Concomitant]
  3. ZOMETA [Concomitant]
  4. REVLIMID [Suspect]
     Indication: MULTIPLE MYELOMA
     Dosage: 25 MG, DAYS 1 THROUGH 21 EVERY 28 DAYS, PO 10 MG, DAYS 1 THROUGH 21 EVERY 28 DAYS, PO
     Route: 048
     Dates: start: 20061004
  5. REVLIMID [Suspect]
     Indication: MULTIPLE MYELOMA
     Dosage: 25 MG, DAYS 1 THROUGH 21 EVERY 28 DAYS, PO 10 MG, DAYS 1 THROUGH 21 EVERY 28 DAYS, PO
     Route: 048
     Dates: start: 20111013
  6. NORCO [Concomitant]
  7. SINUS MEDICATION (TYLENOL SINUS MEDICATION) [Concomitant]

REACTIONS (2)
  - NEUROPATHY PERIPHERAL [None]
  - HEADACHE [None]
